FAERS Safety Report 5366239-6 (Version None)
Quarter: 2007Q2

REPORT INFORMATION
  Report Type: 
  Country: None (occurrence: None)
  Receive Date: 20070621
  Receipt Date: 20070621
  Transmission Date: 20071010
  Serious: Yes (Death)
  Sender: FDA-Public Use
  Company Number: None

PATIENT
  Age: 35 Year
  Sex: Male
  Weight: 104.3273 kg

DRUGS (2)
  1. DURAGESIC-75 [Suspect]
     Indication: BACK PAIN
     Dosage: 1 PATCH EVERY 3 DAYS TRANSDERMAL
     Route: 062
     Dates: start: 20060130, end: 20060204
  2. DURAGESIC-75 [Suspect]
     Indication: POSTOPERATIVE ANALGESIA
     Dosage: 1 PATCH EVERY 3 DAYS TRANSDERMAL
     Route: 062
     Dates: start: 20060130, end: 20060204

REACTIONS (5)
  - ABASIA [None]
  - ALCOHOL USE [None]
  - APHASIA [None]
  - DRUG LEVEL INCREASED [None]
  - OVERDOSE [None]
